FAERS Safety Report 4724232-8 (Version None)
Quarter: 2005Q3

REPORT INFORMATION
  Report Type: 
  Country: None (occurrence: None)
  Receive Date: 20050726
  Receipt Date: 20050714
  Transmission Date: 20060218
  Serious: Yes (Hospitalization)
  Sender: FDA-Public Use
  Company Number: JP-JNJFOC-20050703273

PATIENT
  Sex: Female
  Weight: 40 kg

DRUGS (16)
  1. REMICADE [Suspect]
     Route: 042
  2. REMICADE [Suspect]
     Route: 042
  3. REMICADE [Suspect]
     Indication: RHEUMATOID ARTHRITIS
     Route: 042
  4. METHOTREXATE [Concomitant]
     Route: 048
  5. METHOTREXATE [Concomitant]
     Route: 048
  6. METHOTREXATE [Concomitant]
     Route: 048
  7. METHOTREXATE [Concomitant]
     Route: 048
  8. METHOTREXATE [Concomitant]
     Route: 048
  9. METHOTREXATE [Concomitant]
     Route: 048
  10. METHOTREXATE [Concomitant]
     Route: 048
  11. METHOTREXATE [Concomitant]
     Indication: RHEUMATOID ARTHRITIS
     Route: 048
  12. VOLTAREN [Concomitant]
     Indication: RHEUMATOID ARTHRITIS
     Route: 048
  13. FOLIAMIN [Concomitant]
     Route: 048
  14. MUCOSTA [Concomitant]
     Route: 048
  15. PL [Concomitant]
     Route: 048
  16. FLOMOX [Concomitant]
     Route: 048

REACTIONS (17)
  - BACTERIAL CULTURE POSITIVE [None]
  - CHILLS [None]
  - CONDITION AGGRAVATED [None]
  - HYPERTHERMIA [None]
  - INFUSION RELATED REACTION [None]
  - JOINT ANKYLOSIS [None]
  - JOINT DESTRUCTION [None]
  - JOINT DISLOCATION [None]
  - LABORATORY TEST INTERFERENCE [None]
  - LYMPHADENITIS [None]
  - LYMPHADENOPATHY [None]
  - NAIL TINEA [None]
  - NASOPHARYNGITIS [None]
  - PYREXIA [None]
  - SCAN GALLIUM ABNORMAL [None]
  - SYSTEMIC LUPUS ERYTHEMATOSUS [None]
  - TREATMENT NONCOMPLIANCE [None]
